FAERS Safety Report 8725280 (Version 3)
Quarter: 2012Q4

REPORT INFORMATION
  Report Type: 
  Country: IE (occurrence: IE)
  Receive Date: 20120815
  Receipt Date: 20121218
  Transmission Date: 20130627
  Serious: Yes (Death, Hospitalization, Other)
  Sender: FDA-Public Use
  Company Number: IE-PFIZER INC-2012196758

PATIENT
  Age: 75 Year
  Sex: Male

DRUGS (11)
  1. LIPITOR [Suspect]
     Indication: CEREBROVASCULAR ACCIDENT
     Dosage: 10 mg, UNK
     Route: 048
  2. AMOXICILLIN\CLAVULANATE POTASSIUM [Suspect]
     Dosage: UNK
     Route: 048
     Dates: start: 201206
  3. ACETYLSALICYLIC ACID [Concomitant]
     Dosage: 75 mg, 1x/day
  4. JANUVIA [Concomitant]
     Dosage: 100 mg, 1x/day
  5. COVERSYL PLUS [Concomitant]
     Dosage: 5/1.25 once daily
  6. ELTROXIN [Concomitant]
     Dosage: 25 mg, 1x/day
  7. RASILEZ [Concomitant]
     Dosage: 150 mg, 1x/day
  8. MACRODANTIN [Concomitant]
     Dosage: UNK
  9. ARICEPT [Concomitant]
     Dosage: 10 mg, 1x/day
  10. AMLODIPINE [Concomitant]
     Dosage: 5 mg, 1x/day
  11. GLICLAZIDE [Concomitant]
     Dosage: 90 mg, 1x/day

REACTIONS (3)
  - Jaundice cholestatic [Not Recovered/Not Resolved]
  - Hepatorenal syndrome [Not Recovered/Not Resolved]
  - Death [Fatal]
